FAERS Safety Report 17560555 (Version 2)
Quarter: 2020Q1

REPORT INFORMATION
  Report Type: Spontaneous
  Country: US (occurrence: US)
  Receive Date: 20200319
  Receipt Date: 20200327
  Transmission Date: 20200409
  Serious: No
  Sender: FDA-Public Use
  Company Number: US-UNITED THERAPEUTICS-UNT-2020-003881

PATIENT
  Age: 16 Year
  Sex: Female
  Weight: 53.97 kg

DRUGS (4)
  1. ADCIRCA [Concomitant]
     Active Substance: TADALAFIL
     Indication: PULMONARY ARTERIAL HYPERTENSION
     Dosage: UNK
     Route: 065
  2. ASPIRINE [Suspect]
     Active Substance: ASPIRIN
     Indication: ANTICOAGULANT THERAPY
     Dosage: UNK
     Route: 065
  3. REMODULIN [Suspect]
     Active Substance: TREPROSTINIL
     Indication: PULMONARY ARTERIAL HYPERTENSION
     Dosage: 0.030 ?G/KG, CONTINUING
     Route: 058
     Dates: start: 20190927
  4. LETAIRIS [Concomitant]
     Active Substance: AMBRISENTAN
     Indication: PRODUCT USED FOR UNKNOWN INDICATION
     Dosage: UNK
     Route: 065

REACTIONS (9)
  - Infusion site discharge [Recovered/Resolved]
  - Infusion site erythema [Unknown]
  - Infusion site swelling [Recovering/Resolving]
  - Acne [Not Recovered/Not Resolved]
  - Infusion site haemorrhage [Recovered/Resolved]
  - Nausea [Unknown]
  - Infusion site pain [Recovering/Resolving]
  - Infusion site pruritus [Unknown]
  - Infusion site induration [Unknown]

NARRATIVE: CASE EVENT DATE: 20200310
